FAERS Safety Report 14800477 (Version 3)
Quarter: 2020Q2

REPORT INFORMATION
  Report Type: Spontaneous
  Country: DE (occurrence: DE)
  Receive Date: 20180424
  Receipt Date: 20200415
  Transmission Date: 20200713
  Serious: Yes (Life-Threatening, Hospitalization, Other)
  Sender: FDA-Public Use
  Company Number: PHHY2013DE176318

PATIENT
  Age: 38 Year
  Sex: Female
  Weight: 65 kg

DRUGS (69)
  1. PEGINTERFERON ALFA-2A. [Suspect]
     Active Substance: PEGINTERFERON ALFA-2A
     Dosage: 180 UG, QW
     Route: 065
  2. TETRACAINE HYDROCHLORIDE. [Concomitant]
     Active Substance: TETRACAINE HYDROCHLORIDE
     Indication: PRODUCT USED FOR UNKNOWN INDICATION
     Dosage: UNK
     Route: 065
  3. OMEPRAZOL [Concomitant]
     Active Substance: OMEPRAZOLE
     Indication: PRODUCT USED FOR UNKNOWN INDICATION
     Dosage: UNK
     Route: 065
  4. AZITHROMYCIN ANHYDROUS. [Concomitant]
     Active Substance: AZITHROMYCIN ANHYDROUS
     Indication: PRODUCT USED FOR UNKNOWN INDICATION
     Dosage: 500 MG, UNK
     Route: 065
  5. FUCICORT [Concomitant]
     Active Substance: BETAMETHASONE VALERATE\FUSIDIC ACID
     Route: 065
     Dates: start: 20130715
  6. OMEPRAZOL [Concomitant]
     Active Substance: OMEPRAZOLE
     Dosage: UNK
     Route: 065
     Dates: start: 20130503
  7. VIVINOX [Concomitant]
     Indication: PRODUCT USED FOR UNKNOWN INDICATION
     Dosage: 1 OT, UNK
     Route: 065
     Dates: start: 20130909
  8. LOTRIDERM [Concomitant]
     Active Substance: BETAMETHASONE DIPROPIONATE\CLOTRIMAZOLE
     Route: 065
  9. AMPHO MORONAL [Concomitant]
     Active Substance: AMPHOTERICIN B
     Dosage: UNK
     Route: 065
  10. L-THYROXINE [Concomitant]
     Active Substance: LEVOTHYROXINE
     Dosage: 25 UG, UNK
     Route: 065
     Dates: start: 20131202
  11. L-THYROXINE [Concomitant]
     Active Substance: LEVOTHYROXINE
     Dosage: 100 UG, QD
     Route: 065
     Dates: start: 20130722, end: 20130819
  12. BEPANTHEN [Concomitant]
     Dosage: UNK
     Route: 065
  13. CITALOPRAM [Concomitant]
     Active Substance: CITALOPRAM HYDROBROMIDE
     Indication: PRODUCT USED FOR UNKNOWN INDICATION
     Dosage: 1-0-0
     Route: 065
     Dates: start: 20130320, end: 20130327
  14. PEGINTERFERON ALFA-2A. [Suspect]
     Active Substance: PEGINTERFERON ALFA-2A
     Dosage: 180 UG, QW
     Route: 058
     Dates: start: 20131118
  15. MIRTAZAPIN [Concomitant]
     Active Substance: MIRTAZAPINE
     Dosage: IN THE EVENING
     Route: 065
     Dates: start: 20130402
  16. AZITHROMYCIN ANHYDROUS. [Concomitant]
     Active Substance: AZITHROMYCIN ANHYDROUS
     Dosage: 500 MG, UNK
     Route: 065
  17. AMPHO MORONAL [Concomitant]
     Active Substance: AMPHOTERICIN B
     Indication: PRODUCT USED FOR UNKNOWN INDICATION
     Dosage: 10 MG, UNK
     Route: 065
  18. AMPHO MORONAL [Concomitant]
     Active Substance: AMPHOTERICIN B
     Dosage: 5 DF, UNK
     Route: 065
     Dates: start: 20131230
  19. UNACID [Concomitant]
     Dosage: 1 DF
     Route: 065
     Dates: start: 20140324, end: 20140328
  20. BUDESONIDE EASYHALER [Concomitant]
     Active Substance: BUDESONIDE
     Route: 065
     Dates: start: 20140331
  21. DEXAMYTREX [Concomitant]
     Active Substance: DEXAMETHASONE SODIUM PHOSPHATE\GENTAMICIN SULFATE
     Indication: PRODUCT USED FOR UNKNOWN INDICATION
     Dosage: UNK
     Route: 065
     Dates: start: 20130712
  22. RISPERIDON [Concomitant]
     Active Substance: RISPERIDONE
     Indication: PRODUCT USED FOR UNKNOWN INDICATION
     Dosage: UNK
     Route: 065
     Dates: start: 20140401, end: 20140408
  23. LOPERAMID [Concomitant]
     Active Substance: LOPERAMIDE
     Route: 065
     Dates: start: 20130603, end: 20130603
  24. BETAGALEN [Concomitant]
     Route: 065
  25. UNACID [Concomitant]
     Indication: PRODUCT USED FOR UNKNOWN INDICATION
     Dosage: 2 DF, QD
     Route: 065
     Dates: start: 20140324, end: 20140328
  26. IBUPROFEN. [Concomitant]
     Active Substance: IBUPROFEN
     Indication: PRODUCT USED FOR UNKNOWN INDICATION
     Dosage: 600 MG, UNK
     Route: 065
  27. RIBAVIRIN. [Suspect]
     Active Substance: RIBAVIRIN
     Indication: HEPATITIS C
     Dosage: 1200 MG, QD
     Route: 048
     Dates: start: 20130321, end: 20140317
  28. CEFUROXIME. [Concomitant]
     Active Substance: CEFUROXIME
     Indication: PRODUCT USED FOR UNKNOWN INDICATION
     Dosage: 500 MG, UNK
     Route: 065
     Dates: start: 20130603, end: 20130609
  29. METAMIZOLE [Concomitant]
     Active Substance: METAMIZOLE
     Indication: PRODUCT USED FOR UNKNOWN INDICATION
     Dosage: 500 MG, UNK
     Route: 065
     Dates: start: 20130627
  30. LOPERAMID [Concomitant]
     Active Substance: LOPERAMIDE
     Indication: PRODUCT USED FOR UNKNOWN INDICATION
     Dosage: UNK
     Route: 065
  31. LOTRIDERM [Concomitant]
     Active Substance: BETAMETHASONE DIPROPIONATE\CLOTRIMAZOLE
     Route: 065
     Dates: start: 20130610
  32. AMPHO MORONAL [Concomitant]
     Active Substance: AMPHOTERICIN B
     Dosage: 10 UNK
     Route: 065
     Dates: start: 20130610
  33. BUDESONIDE EASYHALER [Concomitant]
     Active Substance: BUDESONIDE
     Indication: PRODUCT USED FOR UNKNOWN INDICATION
     Dosage: UNK
     Route: 065
  34. L-THYROXINE [Concomitant]
     Active Substance: LEVOTHYROXINE
     Dosage: 12.5 UG
     Route: 065
  35. L-THYROXINE [Concomitant]
     Active Substance: LEVOTHYROXINE
     Dosage: 50 UNK
     Route: 065
     Dates: start: 20130820, end: 20131202
  36. MEMANTINA [Concomitant]
     Active Substance: MEMANTINE HYDROCHLORIDE
     Indication: PRODUCT USED FOR UNKNOWN INDICATION
     Dosage: 500 MG, UNK
     Route: 065
     Dates: start: 20130627
  37. NEO-ANGIN [Concomitant]
     Indication: PRODUCT USED FOR UNKNOWN INDICATION
     Dosage: UNK
     Route: 065
     Dates: start: 20131118
  38. TETRACAINE HYDROCHLORIDE. [Concomitant]
     Active Substance: TETRACAINE HYDROCHLORIDE
     Dosage: UNK
     Route: 065
  39. AZITHROMYCIN ANHYDROUS. [Concomitant]
     Active Substance: AZITHROMYCIN ANHYDROUS
     Dosage: 500 MG, UNK
     Route: 065
     Dates: start: 20130503, end: 20130505
  40. AZITHROMYCIN ANHYDROUS. [Concomitant]
     Active Substance: AZITHROMYCIN ANHYDROUS
     Dosage: 1000 MG, QD (LATER 1 PER ONE DAY)
     Route: 065
     Dates: start: 20141030, end: 20141104
  41. AZITHROMYCIN ANHYDROUS. [Concomitant]
     Active Substance: AZITHROMYCIN ANHYDROUS
     Dosage: 500 MG, UNK
     Route: 065
     Dates: start: 20140408, end: 20140410
  42. VIVINOX [Concomitant]
     Dosage: 1 OT
     Route: 065
     Dates: start: 20130603
  43. BETAGALEN [Concomitant]
     Route: 065
     Dates: start: 20130426
  44. DEXAMYTREX [Concomitant]
     Active Substance: DEXAMETHASONE SODIUM PHOSPHATE\GENTAMICIN SULFATE
     Dosage: UNK
     Route: 065
  45. L-THYROXINE [Concomitant]
     Active Substance: LEVOTHYROXINE
     Dosage: UNK
     Route: 065
  46. PEGINTERFERON ALFA-2A. [Suspect]
     Active Substance: PEGINTERFERON ALFA-2A
     Dosage: 135 UG, QW
     Route: 058
     Dates: start: 20131111, end: 20131117
  47. RISPERIDON [Concomitant]
     Active Substance: RISPERIDONE
     Dosage: UNK
     Route: 065
  48. TETRACAINE HYDROCHLORIDE. [Concomitant]
     Active Substance: TETRACAINE HYDROCHLORIDE
     Dosage: UNK
     Route: 065
     Dates: start: 20130627
  49. MIRTAZAPIN [Concomitant]
     Active Substance: MIRTAZAPINE
     Indication: PRODUCT USED FOR UNKNOWN INDICATION
     Dosage: 15 MG, UNK (IN THE EVENING)
     Route: 065
  50. AZITHROMYCIN ANHYDROUS. [Concomitant]
     Active Substance: AZITHROMYCIN ANHYDROUS
     Dosage: 500 MG, UNK
     Route: 065
     Dates: start: 20130627, end: 20130629
  51. AZITHROMYCIN ANHYDROUS. [Concomitant]
     Active Substance: AZITHROMYCIN ANHYDROUS
     Dosage: 500 MG, UNK
     Route: 065
     Dates: start: 20130527, end: 20130529
  52. AZITHROMYCIN ANHYDROUS. [Concomitant]
     Active Substance: AZITHROMYCIN ANHYDROUS
     Dosage: LATER 1 PER ONE DAY
     Route: 065
     Dates: start: 20141030, end: 20141104
  53. VIVINOX [Concomitant]
     Dosage: 1 OT
     Route: 065
     Dates: start: 20130909
  54. BETAGALEN [Concomitant]
     Indication: PRODUCT USED FOR UNKNOWN INDICATION
     Dosage: UNK
     Route: 065
  55. BUDESONIDE EASYHALER [Concomitant]
     Active Substance: BUDESONIDE
     Route: 065
  56. FUCICORT [Concomitant]
     Active Substance: BETAMETHASONE VALERATE\FUSIDIC ACID
     Indication: PRODUCT USED FOR UNKNOWN INDICATION
     Dosage: 15 G, UNK
     Route: 065
  57. L-THYROXINE [Concomitant]
     Active Substance: LEVOTHYROXINE
     Indication: PRODUCT USED FOR UNKNOWN INDICATION
     Dosage: 50 UG, UNK
     Route: 065
  58. L-THYROXINE [Concomitant]
     Active Substance: LEVOTHYROXINE
     Dosage: 25 UG, QD
     Route: 065
     Dates: start: 20130617
  59. BEPANTHEN [Concomitant]
     Indication: PRODUCT USED FOR UNKNOWN INDICATION
     Dosage: 1 OT, UNK
     Route: 065
     Dates: start: 20130603
  60. RIBAVIRIN. [Suspect]
     Active Substance: RIBAVIRIN
     Indication: CHRONIC HEPATITIS C
     Dosage: 600 MG
     Route: 048
     Dates: start: 20130321, end: 20140317
  61. RIBAVIRIN. [Suspect]
     Active Substance: RIBAVIRIN
     Dosage: 1200 MG, QD
     Route: 048
     Dates: start: 20130421, end: 20140317
  62. PEGINTERFERON ALFA-2A. [Suspect]
     Active Substance: PEGINTERFERON ALFA-2A
     Dosage: 135 UG, QW
     Route: 058
     Dates: start: 20131118, end: 20140317
  63. VITAMIN D3 [Concomitant]
     Active Substance: CHOLECALCIFEROL
     Indication: PRODUCT USED FOR UNKNOWN INDICATION
     Dosage: 1 OT, QD
     Route: 048
     Dates: start: 20130320, end: 20130415
  64. LOPERAMID [Concomitant]
     Active Substance: LOPERAMIDE
     Dosage: 1 OT, UNK
     Route: 065
     Dates: start: 20130603, end: 20130603
  65. LOPERAMID [Concomitant]
     Active Substance: LOPERAMIDE
     Route: 065
  66. LOTRIDERM [Concomitant]
     Active Substance: BETAMETHASONE DIPROPIONATE\CLOTRIMAZOLE
     Indication: PRODUCT USED FOR UNKNOWN INDICATION
     Dosage: UNK
     Route: 065
  67. AMPHO MORONAL [Concomitant]
     Active Substance: AMPHOTERICIN B
     Dosage: UNK
     Route: 065
  68. L-THYROXINE [Concomitant]
     Active Substance: LEVOTHYROXINE
     Dosage: 25 UG, UNK
     Route: 065
     Dates: start: 20130722, end: 20130819
  69. PEGINTERFERON ALFA-2A. [Suspect]
     Active Substance: PEGINTERFERON ALFA-2A
     Indication: CHRONIC HEPATITIS C
     Dosage: 180 UG, QW
     Route: 058
     Dates: start: 20130415, end: 20131110

REACTIONS (35)
  - Gastroenteritis [Recovered/Resolved]
  - Ear discomfort [Recovered/Resolved]
  - Respiratory tract infection [Not Recovered/Not Resolved]
  - Eczema [Not Recovered/Not Resolved]
  - Drug dependence [Not Recovered/Not Resolved]
  - Skin fissures [Not Recovered/Not Resolved]
  - Bradycardia [Not Recovered/Not Resolved]
  - Dyspepsia [Recovered/Resolved]
  - Bulimia nervosa [Not Recovered/Not Resolved]
  - Wound infection [Recovered/Resolved]
  - Syncope [Unknown]
  - Alanine aminotransferase increased [Not Recovered/Not Resolved]
  - Lymphadenopathy [Recovered/Resolved]
  - Cyanosis [Not Recovered/Not Resolved]
  - Angular cheilitis [Not Recovered/Not Resolved]
  - Irritability [Not Recovered/Not Resolved]
  - Chest pain [Not Recovered/Not Resolved]
  - Dizziness [Not Recovered/Not Resolved]
  - Dry skin [Not Recovered/Not Resolved]
  - Alcohol abuse [Recovered/Resolved]
  - Arthralgia [Unknown]
  - Hypersensitivity [Unknown]
  - Circulatory collapse [Unknown]
  - Abdominal discomfort [Recovered/Resolved]
  - Oropharyngeal pain [Recovered/Resolved]
  - Muscle spasms [Recovered/Resolved]
  - Gastritis [Not Recovered/Not Resolved]
  - Visual impairment [Not Recovered/Not Resolved]
  - Night sweats [Not Recovered/Not Resolved]
  - Bulimia nervosa [Recovered/Resolved]
  - Hypotension [Unknown]
  - Weight decreased [Not Recovered/Not Resolved]
  - Angina pectoris [Not Recovered/Not Resolved]
  - Decreased appetite [Not Recovered/Not Resolved]
  - Nausea [Unknown]

NARRATIVE: CASE EVENT DATE: 20130415
